FAERS Safety Report 9503581 (Version 1)
Quarter: 2013Q1

REPORT INFORMATION
  Report Type: Spontaneous
  Country: US (occurrence: None)
  Receive Date: 20130130
  Receipt Date: 20130130
  Transmission Date: 20140127
  Serious: Yes (Other)
  Sender: FDA-Public Use
  Company Number: US201210010072

PATIENT
  Age: 60 Year
  Sex: Female
  Weight: 85 kg

DRUGS (6)
  1. BYDUREON [Suspect]
  2. LEVOTHYROXINE (LEVOTHYROXINE) [Concomitant]
  3. TYLENOL W/CODEINE NO. 3 (CODEINE PHOSPHATE, PARACETAMOL) [Concomitant]
  4. NORTRIPTYLINE (NORTRIPTYILINE) [Concomitant]
  5. CYMBALTA (DULOXETINE HYDROCHLORIDE) [Concomitant]
  6. LISINOPRIL (LISINOPRIL) [Concomitant]

REACTIONS (10)
  - Abdominal pain upper [None]
  - Liver disorder [None]
  - Food intolerance [None]
  - Nausea [None]
  - Vomiting [None]
  - Retching [None]
  - Diarrhoea [None]
  - Dyspepsia [None]
  - Flatulence [None]
  - Abdominal discomfort [None]
